FAERS Safety Report 6245797-3 (Version None)
Quarter: 2009Q2

REPORT INFORMATION
  Report Type: 
  Country: None (occurrence: None)
  Receive Date: 20090624
  Receipt Date: 20090617
  Transmission Date: 20091009
  Serious: Yes (Other)
  Sender: FDA-Public Use
  Company Number: IPS_01692_2009

PATIENT
  Age: 79 Year
  Sex: Male

DRUGS (3)
  1. APOKYN [Suspect]
     Indication: PARKINSON'S DISEASE
     Dosage: (0.4 ML, 1 TO 2 TIMES PER DAY SUBCUTANEOUS)
     Route: 058
     Dates: start: 20090101, end: 20090101
  2. APOKYN [Suspect]
     Indication: PARKINSON'S DISEASE
     Dosage: (0.3 ML, TO 2 TIMES PER DAY SUBCUTANEOUS), (0.2 ML, 1 TO 2 TIMES PER DAY SUBCUTANEOUS)
     Route: 058
     Dates: start: 20090101, end: 20090101
  3. APOKYN [Suspect]
     Indication: PARKINSON'S DISEASE
     Dosage: (0.3 ML, TO 2 TIMES PER DAY SUBCUTANEOUS), (0.2 ML, 1 TO 2 TIMES PER DAY SUBCUTANEOUS)
     Route: 058
     Dates: start: 20090101, end: 20090101

REACTIONS (2)
  - DELUSIONAL DISORDER, UNSPECIFIED TYPE [None]
  - NO THERAPEUTIC RESPONSE [None]
